FAERS Safety Report 5328532-2 (Version None)
Quarter: 2007Q2

REPORT INFORMATION
  Report Type: 
  Country: None (occurrence: None)
  Receive Date: 20070518
  Receipt Date: 20070514
  Transmission Date: 20071010
  Serious: Yes (Death, Hospitalization, Disabling, Other)
  Sender: FDA-Public Use
  Company Number: PHHO2007VE08400

PATIENT
  Sex: Female

DRUGS (7)
  1. ZELMAC / HTF 919A [Suspect]
     Indication: IRRITABLE BOWEL SYNDROME
     Dosage: 6MG
     Route: 048
  2. AMIODARONE HYDROCHLORIDE [Concomitant]
  3. VITAMINS [Concomitant]
  4. AMLODIPINE [Concomitant]
  5. RANITIDINE [Concomitant]
  6. SUCRALFATE [Concomitant]
  7. ALUMINIUM COMPOUNDS [Concomitant]

REACTIONS (7)
  - AMMONIA INCREASED [None]
  - BILE DUCT OBSTRUCTION [None]
  - HYPERBILIRUBINAEMIA [None]
  - INTESTINAL OBSTRUCTION [None]
  - MALIGNANT NEOPLASM PROGRESSION [None]
  - PANCREATIC CARCINOMA [None]
  - SURGERY [None]
